FAERS Safety Report 8326523-0 (Version None)
Quarter: 2012Q2

REPORT INFORMATION
  Report Type: 
  Country: None (occurrence: None)
  Receive Date: 20120501
  Receipt Date: 20090804
  Transmission Date: 20120825
  Serious: No
  Sender: FDA-Public Use
  Company Number: US-TEVA-2009009195

PATIENT
  Sex: Female
  Weight: 69.008 kg

DRUGS (17)
  1. NUVIGIL [Suspect]
     Indication: COMPLEX REGIONAL PAIN SYNDROME
     Dosage: 150 MILLIGRAM;
     Route: 048
     Dates: start: 20090701
  2. LEVORPHANOL TARTRATE [Concomitant]
  3. REGLAN [Concomitant]
     Indication: IMPAIRED GASTRIC EMPTYING
     Dates: start: 20090201
  4. MIRALAX [Concomitant]
     Indication: CONSTIPATION
  5. ZETIA [Concomitant]
  6. ZOLOFT [Concomitant]
     Indication: DEPRESSION
  7. NEURONTIN [Concomitant]
  8. PRILOSEC [Concomitant]
     Dates: start: 20090201
  9. ZOCOR [Concomitant]
     Dates: start: 20090101
  10. VARIOUS VITAMINS [Concomitant]
  11. LEVOTHYROXINE SODIUM [Concomitant]
     Indication: HYPOTHYROIDISM
  12. LIDODERM [Concomitant]
     Dates: start: 20070101
  13. FISH OIL [Concomitant]
  14. ELAVIL [Concomitant]
  15. KADIAN [Concomitant]
     Dates: start: 20090101
  16. NORCO [Concomitant]
  17. PEPCID [Concomitant]
     Dates: start: 20090201

REACTIONS (1)
  - SOMNOLENCE [None]
